FAERS Safety Report 6129878-0 (Version None)
Quarter: 2009Q1

REPORT INFORMATION
  Report Type: 
  Country: None (occurrence: None)
  Receive Date: 20090324
  Receipt Date: 20090216
  Transmission Date: 20090719
  Serious: Yes (Other)
  Sender: FDA-Public Use
  Company Number: JP-PFIZER INC-2009184376

PATIENT

DRUGS (5)
  1. ATORVASTATIN CALCIUM [Suspect]
     Indication: HYPERCHOLESTEROLAEMIA
     Dosage: 10 MG, UNK
     Route: 048
  2. EBASTEL [Concomitant]
     Dosage: UNK
  3. PATANOL [Concomitant]
     Dosage: UNK
     Route: 048
  4. CELESTAMINE [Concomitant]
     Dosage: UNK
     Route: 048
  5. SINLESTAL [Concomitant]
     Dosage: UNK
     Route: 048

REACTIONS (1)
  - LOSS OF CONSCIOUSNESS [None]
